FAERS Safety Report 15720878 (Version 1)
Quarter: 2018Q4

REPORT INFORMATION
  Report Type: Spontaneous
  Country: US (occurrence: US)
  Receive Date: 20181214
  Receipt Date: 20181214
  Transmission Date: 20190205
  Serious: Yes (Hospitalization)
  Sender: FDA-Public Use
  Company Number: US-STRIDES ARCOLAB LIMITED-2018SP010473

PATIENT
  Age: 31 Year
  Sex: Female

DRUGS (2)
  1. TACROLIMUS. [Suspect]
     Active Substance: TACROLIMUS
     Indication: LUNG TRANSPLANT
     Dosage: 2.5 MG EVERY 12 HOURS
     Route: 065
  2. MYCOPHENOLATE MOFETIL. [Suspect]
     Active Substance: MYCOPHENOLATE MOFETIL
     Indication: LUNG TRANSPLANT
     Dosage: 750 MG EVERY 12 HOURS
     Route: 065

REACTIONS (11)
  - Visual agnosia [Recovered/Resolved]
  - Gait disturbance [Recovered/Resolved]
  - Vision blurred [Recovered/Resolved]
  - Ataxia [Recovered/Resolved]
  - Blood pressure increased [Recovered/Resolved]
  - Balint^s syndrome [Recovered/Resolved]
  - Posterior reversible encephalopathy syndrome [Recovered/Resolved]
  - Headache [Recovered/Resolved]
  - Dysmetria [Recovered/Resolved]
  - Off label use [Unknown]
  - Apraxia [Recovered/Resolved]
